FAERS Safety Report 4392871-2 (Version None)
Quarter: 2004Q3

REPORT INFORMATION
  Report Type: 
  Country: None (occurrence: None)
  Receive Date: 20040708
  Receipt Date: 20040603
  Transmission Date: 20050211
  Serious: Yes (Hospitalization)
  Sender: FDA-Public Use
  Company Number: JP-MERCK-0406USA00672

PATIENT
  Age: 61 Year

DRUGS (3)
  1. BUSCOPAN [Suspect]
     Route: 048
     Dates: start: 20040508
  2. PEPCID RPD [Suspect]
     Route: 048
     Dates: start: 20040518
  3. PARIET [Suspect]
     Route: 048
     Dates: start: 20040508

REACTIONS (3)
  - HEPATITIS FULMINANT [None]
  - INTERSTITIAL LUNG DISEASE [None]
  - LOSS OF CONSCIOUSNESS [None]
